FAERS Safety Report 5824457-4 (Version None)
Quarter: 2008Q3

REPORT INFORMATION
  Report Type: 
  Country: None (occurrence: None)
  Receive Date: 20080728
  Receipt Date: 20080718
  Transmission Date: 20090109
  Serious: Yes (Other)
  Sender: FDA-Public Use
  Company Number: B0529686A

PATIENT
  Sex: Female

DRUGS (2)
  1. ZIAGEN [Suspect]
     Indication: DRUG USE FOR UNKNOWN INDICATION
     Dosage: 600MG PER DAY
  2. ANTIRETROVIRAL MEDICATIONS [Concomitant]

REACTIONS (1)
  - HEPATITIS [None]
